FAERS Safety Report 4335488-8 (Version None)
Quarter: 2004Q2

REPORT INFORMATION
  Report Type: 
  Country: None (occurrence: None)
  Receive Date: 20040406
  Receipt Date: 20040324
  Transmission Date: 20050107
  Serious: Yes (Life-Threatening)
  Sender: FDA-Public Use
  Company Number: 2000-BP-01675

PATIENT
  Age: 24 Year
  Sex: Male
  Weight: 68.49 kg

DRUGS (3)
  1. VIRAMUNE [Suspect]
     Indication: HIV INFECTION
     Dosage: 400 MG (NR, 200 MG BID), PO
     Route: 048
     Dates: start: 20000718
  2. ABT (378/R) [Suspect]
     Dosage: (NR), PO
     Route: 048
     Dates: start: 20000718
  3. ATOVAQUONE [Concomitant]

REACTIONS (2)
  - HYPERTRIGLYCERIDAEMIA [None]
  - NEUTROPHIL COUNT DECREASED [None]
